FAERS Safety Report 9465136 (Version 2)
Quarter: 2013Q3

REPORT INFORMATION
  Report Type: Spontaneous
  Country: JP (occurrence: JP)
  Receive Date: 20130819
  Receipt Date: 20130923
  Transmission Date: 20140515
  Serious: Yes (Other)
  Sender: FDA-Public Use
  Company Number: JP-PFIZER INC-2013237081

PATIENT
  Sex: 0

DRUGS (1)
  1. UNASYN-S [Suspect]
     Dosage: 9 G, DAILY
     Route: 042

REACTIONS (1)
  - Deafness [Recovered/Resolved]
